FAERS Safety Report 15272855 (Version 2)
Quarter: 2018Q3

REPORT INFORMATION
  Report Type: Spontaneous
  Country: AR (occurrence: AR)
  Receive Date: 20180813
  Receipt Date: 20180831
  Transmission Date: 20181010
  Serious: Yes (Other)
  Sender: FDA-Public Use
  Company Number: AR-GILEAD-2018-0355767

PATIENT
  Age: 36 Year
  Sex: Female

DRUGS (2)
  1. AMBRISENTAN [Suspect]
     Active Substance: AMBRISENTAN
     Indication: PULMONARY ARTERIAL HYPERTENSION
     Dosage: 5 MG, UNK
     Route: 065
     Dates: start: 20150810
  2. AMBRISENTAN [Suspect]
     Active Substance: AMBRISENTAN
     Dosage: 10 MG, UNK
     Route: 065

REACTIONS (11)
  - Cough [Unknown]
  - Product use issue [Unknown]
  - Drug dose omission [Unknown]
  - Disease progression [Unknown]
  - Ill-defined disorder [Unknown]
  - Movement disorder [Unknown]
  - Underdose [Unknown]
  - Malaise [Unknown]
  - Dyspnoea [Unknown]
  - Blood pressure increased [Unknown]
  - Product availability issue [Unknown]
